FAERS Safety Report 9470302 (Version 1)
Quarter: 2013Q3

REPORT INFORMATION
  Report Type: Spontaneous
  Country: US (occurrence: US)
  Receive Date: 20130822
  Receipt Date: 20130822
  Transmission Date: 20140515
  Serious: No
  Sender: FDA-Public Use
  Company Number: US-SANOFI-AVENTIS-2012SA066032

PATIENT
  Age: 74 Year
  Sex: Female

DRUGS (13)
  1. MULTAQ [Suspect]
     Indication: ATRIAL FIBRILLATION
     Route: 048
     Dates: start: 20120815
  2. COUMADIN [Suspect]
     Indication: PRODUCT USED FOR UNKNOWN INDICATION
     Route: 048
     Dates: start: 20120815
  3. COUMADIN [Suspect]
     Indication: PRODUCT USED FOR UNKNOWN INDICATION
     Dosage: 2.5 MG ALTERNATING WITH 5 MG DAILY
     Route: 048
     Dates: start: 201208
  4. METOPROLOL [Suspect]
     Indication: PRODUCT USED FOR UNKNOWN INDICATION
     Route: 065
     Dates: start: 20120815
  5. VALSARTAN [Concomitant]
     Dates: end: 201208
  6. VALSARTAN [Concomitant]
     Dates: start: 201208
  7. XANAX [Concomitant]
  8. LIPITOR /UNK/ [Concomitant]
  9. DIURETICS [Concomitant]
  10. MULTIVITAMINS [Concomitant]
  11. LUTEIN [Concomitant]
  12. COENZYME Q10 [Concomitant]
  13. THYROID THERAPY [Concomitant]

REACTIONS (2)
  - Hypotension [Recovering/Resolving]
  - Malaise [Unknown]
